FAERS Safety Report 9397766 (Version 6)
Quarter: 2014Q3

REPORT INFORMATION
  Report Type: Spontaneous
  Country: US (occurrence: US)
  Receive Date: 20130712
  Receipt Date: 20140822
  Transmission Date: 20150326
  Serious: Yes (Hospitalization, Other)
  Sender: FDA-Public Use
  Company Number: US-009507513-1307USA003450

PATIENT
  Sex: Female
  Weight: 62.59 kg

DRUGS (4)
  1. FOSAMAX [Suspect]
     Active Substance: ALENDRONATE SODIUM
     Dosage: UNK
     Route: 048
     Dates: start: 2003
  2. HORMONES (UNSPECIFIED) [Concomitant]
     Active Substance: UNSPECIFIED INGREDIENT
     Dosage: UNK
     Dates: start: 2004
  3. FOSAMAX [Suspect]
     Active Substance: ALENDRONATE SODIUM
     Dosage: 70 MG, QW
     Route: 048
     Dates: start: 20050602
  4. ALENDRONATE SODIUM. [Suspect]
     Active Substance: ALENDRONATE SODIUM

REACTIONS (41)
  - Femur fracture [Unknown]
  - Parotitis [Unknown]
  - Escherichia urinary tract infection [Unknown]
  - Myocardial infarction [Unknown]
  - Pneumonia [Unknown]
  - Transient ischaemic attack [Recovered/Resolved]
  - Constipation [Not Recovered/Not Resolved]
  - Dehydration [Unknown]
  - Femur fracture [Unknown]
  - Gastrointestinal haemorrhage [Unknown]
  - Hyperlipidaemia [Unknown]
  - Hyponatraemia [Recovering/Resolving]
  - Bundle branch block left [Unknown]
  - Coronary artery stenosis [Unknown]
  - Staphylococcal sepsis [Unknown]
  - Iron deficiency anaemia [Unknown]
  - Osteoarthritis [Unknown]
  - Large intestine polyp [Unknown]
  - Osteopenia [Unknown]
  - Coombs positive haemolytic anaemia [Unknown]
  - Peroneal nerve palsy [Not Recovered/Not Resolved]
  - Cataract operation [Unknown]
  - Autoimmune thyroiditis [Unknown]
  - Lung infiltration [Unknown]
  - Arrhythmia [Unknown]
  - Dehydration [Unknown]
  - Hypertension [Unknown]
  - Foot deformity [Unknown]
  - Urinary incontinence [Unknown]
  - Arteriosclerosis coronary artery [Unknown]
  - Pulmonary mass [Unknown]
  - Intramedullary rod insertion [Unknown]
  - Coronary arterial stent insertion [Unknown]
  - Spinal laminectomy [Recovered/Resolved with Sequelae]
  - Pollakiuria [Unknown]
  - Pain in jaw [Unknown]
  - Diarrhoea [Unknown]
  - Anaemia macrocytic [Not Recovered/Not Resolved]
  - Hypertensive heart disease [Unknown]
  - Cataract operation [Unknown]
  - Cardiac failure congestive [Unknown]

NARRATIVE: CASE EVENT DATE: 2006
